FAERS Safety Report 6526426-8 (Version None)
Quarter: 2009Q4

REPORT INFORMATION
  Report Type: 
  Country: None (occurrence: None)
  Receive Date: 20091229
  Receipt Date: 20091218
  Transmission Date: 20100525
  Serious: Yes (Other)
  Sender: FDA-Public Use
  Company Number: 2009SP042886

PATIENT
  Sex: Female

DRUGS (1)
  1. AFRIN [Suspect]
     Indication: MULTIPLE ALLERGIES
     Dosage: NAS
     Route: 045
     Dates: start: 20091217

REACTIONS (7)
  - BURNING SENSATION [None]
  - DYSPNOEA [None]
  - EYE PAIN [None]
  - LACRIMATION INCREASED [None]
  - OCULAR HYPERAEMIA [None]
  - OROPHARYNGEAL PAIN [None]
  - THROAT TIGHTNESS [None]
